FAERS Safety Report 16599373 (Version 1)
Quarter: 2019Q3

REPORT INFORMATION
  Report Type: Spontaneous
  Country: US (occurrence: US)
  Receive Date: 20190719
  Receipt Date: 20190719
  Transmission Date: 20191004
  Serious: Yes (Hospitalization)
  Sender: FDA-Public Use
  Company Number: PHHY2019US163741

PATIENT
  Weight: 2.5 kg

DRUGS (5)
  1. DAUNORUBICIN [Suspect]
     Active Substance: DAUNORUBICIN
     Indication: FOETAL EXPOSURE DURING PREGNANCY
     Dosage: MOTHER DOSE 25 MG/M2, DAY 1, 8, 15, AND 22
     Route: 064
  2. PEG/L-ASPARAGINASE [Suspect]
     Active Substance: PEGASPARGASE
     Indication: FOETAL EXPOSURE DURING PREGNANCY
     Route: 064
  3. METHOTREXATE. [Suspect]
     Active Substance: METHOTREXATE
     Indication: FOETAL EXPOSURE DURING PREGNANCY
     Route: 064
  4. VINCRISTINE [Suspect]
     Active Substance: VINCRISTINE
     Indication: FOETAL EXPOSURE DURING PREGNANCY
     Dosage: MOTHER DOSE 2 MG, ON DAYS 1, 8, 15, AND 22
     Route: 064
  5. PREDNISONE. [Suspect]
     Active Substance: PREDNISONE
     Indication: FOETAL EXPOSURE DURING PREGNANCY
     Dosage: MOTHER DOSE 2 MG/KG, QD DAY 1-28
     Route: 064

REACTIONS (2)
  - Foetal exposure during pregnancy [Unknown]
  - Premature baby [Unknown]
